FAERS Safety Report 5600822-5 (Version None)
Quarter: 2008Q1

REPORT INFORMATION
  Report Type: 
  Country: None (occurrence: None)
  Receive Date: 20080123
  Receipt Date: 20080111
  Transmission Date: 20080703
  Serious: Yes (Other)
  Sender: FDA-Public Use
  Company Number: US-PFIZER INC-2008004601

PATIENT
  Sex: Male
  Weight: 83.9 kg

DRUGS (12)
  1. CHANTIX [Suspect]
     Indication: SMOKING CESSATION THERAPY
     Route: 048
     Dates: start: 20070411, end: 20070711
  2. ZIAC [Suspect]
     Indication: BLOOD PRESSURE INCREASED
     Dosage: TEXT:10/6.5 MG
     Dates: start: 20071001, end: 20080108
  3. COZAAR [Concomitant]
  4. ZYRTEC [Concomitant]
  5. NASONEX [Concomitant]
  6. CALCIUM WITH VITAMIN D [Concomitant]
  7. FOLIC ACID [Concomitant]
  8. SAW PALMETTO [Concomitant]
     Dosage: DAILY DOSE:1725MG
  9. ASCORBIC ACID [Concomitant]
  10. FISH OIL [Concomitant]
  11. VITAMIN CAP [Concomitant]
  12. FLAXSEED OIL [Concomitant]

REACTIONS (4)
  - BLOOD GLUCOSE INCREASED [None]
  - BLOOD PRESSURE INCREASED [None]
  - NAUSEA [None]
  - VISION BLURRED [None]
